FAERS Safety Report 8910816 (Version 1)
Quarter: 2012Q4

REPORT INFORMATION
  Report Type: 
  Country: DK (occurrence: DK)
  Receive Date: 20121116
  Receipt Date: 20121116
  Transmission Date: 20130627
  Serious: Yes (Hospitalization)
  Sender: FDA-Public Use
  Company Number: DK-PFIZER INC-2012284639

PATIENT
  Age: 50 Year
  Sex: Male

DRUGS (2)
  1. DEPO-MEDROL [Suspect]
     Indication: BAKER^S CYST
     Dosage: Administered 3 times. Dose 1-2 ml
     Dates: start: 20091117, end: 20100119
  2. XYLOCAIN [Concomitant]
     Indication: BAKER^S CYST
     Dosage: Dose: 1-2 ml, administered 3 times
     Dates: start: 20091117, end: 20100119

REACTIONS (4)
  - Off label use [Recovered/Resolved]
  - Arthropathy [Recovered/Resolved]
  - Osteoarthritis [Unknown]
  - Pain [Recovered/Resolved]
